FAERS Safety Report 18266485 (Version 1)
Quarter: 2020Q3

REPORT INFORMATION
  Report Type: Report from Study
  Country: IT (occurrence: IT)
  Receive Date: 20200915
  Receipt Date: 20200915
  Transmission Date: 20201103
  Serious: Yes (Hospitalization, Other)
  Sender: FDA-Public Use
  Company Number: IT-B.I. PHARMACEUTICALS,INC./RIDGEFIELD-2020-BI-046366

PATIENT
  Age: 78 Year
  Sex: Male
  Weight: 0 kg

DRUGS (1)
  1. PRADAXA [Suspect]
     Active Substance: DABIGATRAN ETEXILATE MESYLATE
     Indication: THROMBOSIS PROPHYLAXIS
     Route: 048
     Dates: start: 20171127, end: 20200612

REACTIONS (5)
  - Vena cava thrombosis [Recovering/Resolving]
  - Pulmonary embolism [Recovering/Resolving]
  - Drug ineffective [Recovering/Resolving]
  - Blood loss anaemia [Recovering/Resolving]
  - Subcapsular renal haematoma [Recovering/Resolving]

NARRATIVE: CASE EVENT DATE: 20200611
